FAERS Safety Report 6310352-3 (Version None)
Quarter: 2009Q3

REPORT INFORMATION
  Report Type: 
  Country: None (occurrence: None)
  Receive Date: 20090811
  Receipt Date: 20090731
  Transmission Date: 20100115
  Serious: Yes (Other)
  Sender: FDA-Public Use
  Company Number: 2009SP017537

PATIENT
  Age: 46 Year
  Sex: Female
  Weight: 58.9676 kg

DRUGS (2)
  1. PEG-INTRON [Suspect]
     Indication: HEPATITIS C
     Dates: start: 20081115, end: 20090508
  2. REBETOL [Suspect]
     Indication: HEPATITIS C
     Dates: start: 20081115, end: 20090508

REACTIONS (5)
  - ALOPECIA [None]
  - CHILLS [None]
  - PYREXIA [None]
  - THROAT CANCER [None]
  - WEIGHT DECREASED [None]
